FAERS Safety Report 6793551-6 (Version None)
Quarter: 2010Q2

REPORT INFORMATION
  Report Type: 
  Country: None (occurrence: None)
  Receive Date: 20100624
  Receipt Date: 20090123
  Transmission Date: 20101027
  Serious: Yes (Other)
  Sender: FDA-Public Use
  Company Number: US-PFIZER INC-2008097687

PATIENT
  Age: 63 Year
  Sex: Female

DRUGS (21)
  1. GEODON [Suspect]
     Dosage: 120 MG, 1X/DAY
     Route: 048
     Dates: start: 20051021, end: 20081117
  2. CYMBALTA [Suspect]
     Dosage: 60 MG, 1X/DAY
  3. CRESTOR [Concomitant]
  4. NEXIUM [Concomitant]
  5. MAVIK [Concomitant]
  6. BENTYL [Concomitant]
  7. ZETIA [Concomitant]
  8. FLONASE [Concomitant]
  9. PEPCID [Concomitant]
  10. MUCINEX [Concomitant]
  11. DARVOCET [Concomitant]
  12. AMBIEN [Concomitant]
  13. ATIVAN [Concomitant]
  14. ACETYLSALICYLIC ACID [Concomitant]
  15. MIDRIN [Concomitant]
  16. DONNATAL [Concomitant]
  17. VITAMINS [Concomitant]
  18. METAMUCIL-2 [Concomitant]
  19. VITAMIN B-12 [Concomitant]
  20. ALL OTHER THERAPEUTIC PRODUCTS [Concomitant]
  21. GLUCOSAMINE WITH MSM [Concomitant]

REACTIONS (1)
  - TARDIVE DYSKINESIA [None]
